FAERS Safety Report 16573189 (Version 1)
Quarter: 2019Q3

REPORT INFORMATION
  Report Type: Report from Study
  Country: US (occurrence: US)
  Receive Date: 20190715
  Receipt Date: 20190715
  Transmission Date: 20191004
  Serious: Yes (Death)
  Sender: FDA-Public Use
  Company Number: US-BAYER-2019-130856

PATIENT

DRUGS (1)
  1. ASPIRIN 81MG [Suspect]
     Active Substance: ASPIRIN
     Indication: ANTICOAGULANT THERAPY
     Dosage: 81 MG

REACTIONS (1)
  - Subdural haematoma [Fatal]
